FAERS Safety Report 21035486 (Version 4)
Quarter: 2023Q2

REPORT INFORMATION
  Report Type: Report from Study
  Country: NL (occurrence: NL)
  Receive Date: 20220701
  Receipt Date: 20230408
  Transmission Date: 20230722
  Serious: Yes (Hospitalization, Disabling, Other)
  Sender: FDA-Public Use
  Company Number: NL-TEVA-2022-NL-2049636

PATIENT
  Age: 52 Year
  Sex: Female

DRUGS (2)
  1. AJOVY [Suspect]
     Active Substance: FREMANEZUMAB-VFRM
     Indication: Migraine
     Route: 058
     Dates: start: 202203
  2. VALPROATE SODIUM [Concomitant]
     Active Substance: VALPROATE SODIUM
     Indication: Pain
     Dosage: 7 MILLIGRAM DAILY;
     Route: 048
     Dates: start: 20211110

REACTIONS (2)
  - Cerebral infarction [Not Recovered/Not Resolved]
  - Oesophageal cancer metastatic [Not Recovered/Not Resolved]

NARRATIVE: CASE EVENT DATE: 20220617
